FAERS Safety Report 20073333 (Version 2)
Quarter: 2022Q1

REPORT INFORMATION
  Report Type: Report from Study
  Country: BR (occurrence: BR)
  Receive Date: 20211116
  Receipt Date: 20220211
  Transmission Date: 20220423
  Serious: Yes (Other)
  Sender: FDA-Public Use
  Company Number: BR-NOVARTISPH-NVSC2021BR254631

PATIENT
  Age: 81 Year
  Sex: Female

DRUGS (20)
  1. FULVESTRANT [Suspect]
     Active Substance: FULVESTRANT
     Indication: Breast cancer
     Dosage: 250 MG
     Route: 065
     Dates: start: 2008, end: 2017
  2. FULVESTRANT [Suspect]
     Active Substance: FULVESTRANT
     Dosage: 500 MG
     Route: 065
     Dates: start: 201805, end: 201808
  3. FULVESTRANT [Suspect]
     Active Substance: FULVESTRANT
     Dosage: 500 MG
     Route: 065
     Dates: start: 20200514
  4. ANASTROZOLE [Suspect]
     Active Substance: ANASTROZOLE
     Indication: Breast cancer
     Dosage: UNK
     Route: 065
     Dates: start: 2008, end: 2017
  5. TAMOXIFEN [Suspect]
     Active Substance: TAMOXIFEN
     Indication: Cancer hormonal therapy
     Dosage: UNK
     Route: 065
     Dates: start: 201001, end: 201503
  6. TAMOXIFEN [Suspect]
     Active Substance: TAMOXIFEN
     Indication: Breast cancer
  7. EVEROLIMUS [Suspect]
     Active Substance: EVEROLIMUS
     Indication: Breast cancer
     Dosage: UNK
     Route: 065
     Dates: start: 201808, end: 201812
  8. ALPELISIB [Suspect]
     Active Substance: ALPELISIB
     Indication: Breast cancer
     Dosage: UNK
     Route: 065
     Dates: start: 20200514
  9. ALPELISIB [Suspect]
     Active Substance: ALPELISIB
     Dosage: UNK
     Route: 065
  10. ALPELISIB [Suspect]
     Active Substance: ALPELISIB
     Dosage: UNK
     Route: 065
     Dates: start: 20200514
  11. CYCLOPHOSPHAMIDE [Concomitant]
     Active Substance: CYCLOPHOSPHAMIDE
     Indication: Product used for unknown indication
     Dosage: UNK
     Route: 065
  12. PALBOCICLIB [Concomitant]
     Active Substance: PALBOCICLIB
     Indication: Product used for unknown indication
     Dosage: UNK
     Route: 065
     Dates: start: 201805, end: 201808
  13. EXEMESTANE [Concomitant]
     Active Substance: EXEMESTANE
     Indication: Product used for unknown indication
     Dosage: UNK
     Route: 065
     Dates: start: 201808, end: 201812
  14. ERIBULIN [Concomitant]
     Active Substance: ERIBULIN
     Indication: Product used for unknown indication
     Dosage: UNK
     Route: 065
     Dates: start: 201901, end: 201906
  15. ABRAXANE [Concomitant]
     Active Substance: PACLITAXEL
     Indication: Product used for unknown indication
     Dosage: UNK
     Route: 065
     Dates: start: 201902, end: 201908
  16. ABRAXANE [Concomitant]
     Active Substance: PACLITAXEL
     Dosage: UNK
     Route: 065
  17. DOXORUBICIN HYDROCHLORIDE [Concomitant]
     Active Substance: DOXORUBICIN HYDROCHLORIDE
     Indication: Product used for unknown indication
     Dosage: UNK
     Route: 065
     Dates: start: 2008, end: 2017
  18. DOXORUBICIN [Concomitant]
     Active Substance: DOXORUBICIN
     Indication: Product used for unknown indication
     Dosage: UNK
     Route: 065
  19. FLUOROURACIL [Concomitant]
     Active Substance: FLUOROURACIL
     Indication: Product used for unknown indication
     Dosage: UNK
     Route: 065
  20. VINORELBINE [Concomitant]
     Active Substance: VINORELBINE TARTRATE
     Indication: Product used for unknown indication
     Dosage: UNK
     Route: 065
     Dates: start: 201801, end: 201805

REACTIONS (13)
  - Ascites [Unknown]
  - Abdominal distension [Unknown]
  - Immunosuppression [Unknown]
  - Peritoneal disorder [Unknown]
  - Pre-existing disease [Unknown]
  - Pain [Unknown]
  - Hyperglycaemia [Unknown]
  - Toxicity to various agents [Unknown]
  - Weight decreased [Unknown]
  - Decreased appetite [Unknown]
  - Rash pruritic [Unknown]
  - Fatigue [Unknown]
  - Nausea [Unknown]

NARRATIVE: CASE EVENT DATE: 20210401
